FAERS Safety Report 7320569-7 (Version None)
Quarter: 2011Q1

REPORT INFORMATION
  Report Type: 
  Country: None (occurrence: None)
  Receive Date: 20110228
  Receipt Date: 20110217
  Transmission Date: 20110831
  Serious: Yes (Other)
  Sender: FDA-Public Use
  Company Number: JP-ASTRAZENECA-2011SE10051

PATIENT
  Sex: Male

DRUGS (3)
  1. FLUITRAN [Concomitant]
     Indication: HYPERTENSION
     Route: 048
  2. BLOPRESS [Suspect]
     Indication: HYPERTENSION
     Route: 048
  3. BLOPRESS [Suspect]
     Route: 048
     Dates: end: 20101201

REACTIONS (3)
  - DIARRHOEA [None]
  - DEHYDRATION [None]
  - RENAL FAILURE CHRONIC [None]
